FAERS Safety Report 16936315 (Version 2)
Quarter: 2020Q4

REPORT INFORMATION
  Report Type: Spontaneous
  Country: US (occurrence: US)
  Receive Date: 20191018
  Receipt Date: 20201204
  Transmission Date: 20210113
  Serious: Yes (Other)
  Sender: FDA-Public Use
  Company Number: US-PFIZER INC-2019450435

PATIENT
  Age: 31 Year
  Sex: Male
  Weight: 85 kg

DRUGS (2)
  1. LYRICA [Suspect]
     Active Substance: PREGABALIN
     Indication: SCIATICA
  2. LYRICA [Suspect]
     Active Substance: PREGABALIN
     Indication: PAIN
     Dosage: 150 MG, 2X/DAY(150 MG, ONE IN MORNING ONE AT NIGHT)

REACTIONS (3)
  - Therapeutic product effect incomplete [Unknown]
  - Product prescribing issue [Unknown]
  - Seizure [Unknown]
